FAERS Safety Report 15977291 (Version 2)
Quarter: 2019Q1

REPORT INFORMATION
  Report Type: Spontaneous
  Country: CN (occurrence: CN)
  Receive Date: 20190218
  Receipt Date: 20190222
  Transmission Date: 20190418
  Serious: Yes (Hospitalization, Other)
  Sender: FDA-Public Use
  Company Number: CN-009507513-1902CHN005317

PATIENT
  Age: 31 Year
  Sex: Female
  Weight: 53 kg

DRUGS (1)
  1. DIPROSPAN [Suspect]
     Active Substance: BETAMETHASONE DIPROPIONATE\BETAMETHASONE SODIUM PHOSPHATE
     Indication: FASCIITIS
     Dosage: 2 % LIDOCAINE 5 MILLILITER (ML) + COMPOUND BETAMETHASONE 1 ML WHICH WAS DILUTED TO 20 ML

REACTIONS (1)
  - Arachnoiditis [Recovered/Resolved]
